FAERS Safety Report 17057819 (Version 1)
Quarter: 2019Q4

REPORT INFORMATION
  Report Type: Spontaneous
  Country: PT (occurrence: PT)
  Receive Date: 20191121
  Receipt Date: 20191121
  Transmission Date: 20200122
  Serious: Yes (Other)
  Sender: FDA-Public Use
  Company Number: NVSC2019PT039635

PATIENT
  Age: 42 Year
  Sex: Female

DRUGS (3)
  1. PREDNISOLONE. [Suspect]
     Active Substance: PREDNISOLONE
     Indication: LUPUS NEPHRITIS
     Dosage: 60 MG, QD
     Route: 065
  2. HYDROXYCHLOROQUINE [Suspect]
     Active Substance: HYDROXYCHLOROQUINE
     Indication: LUPUS NEPHRITIS
     Dosage: 400 MG, QD
     Route: 065
  3. CYCLOPHOSPHAMIDE. [Suspect]
     Active Substance: CYCLOPHOSPHAMIDE
     Indication: LUPUS NEPHRITIS
     Dosage: 0.75 G/M2, QMO
     Route: 042

REACTIONS (7)
  - Bronchopulmonary aspergillosis [Recovered/Resolved]
  - Pyrexia [Unknown]
  - Staphylococcal infection [Recovered/Resolved]
  - Gastrointestinal haemorrhage [Unknown]
  - Cytomegalovirus colitis [Recovered/Resolved]
  - Cough [Unknown]
  - Brain abscess [Recovered/Resolved]
